FAERS Safety Report 10177863 (Version 1)
Quarter: 2014Q2

REPORT INFORMATION
  Report Type: Spontaneous
  Country: FR (occurrence: FR)
  Receive Date: 20140516
  Receipt Date: 20140516
  Transmission Date: 20141212
  Serious: Yes (Hospitalization)
  Sender: FDA-Public Use
  Company Number: FR-SA-2014SA063381

PATIENT
  Age: 66 Year
  Sex: Female

DRUGS (17)
  1. TRANXENE [Suspect]
     Indication: PRODUCT USED FOR UNKNOWN INDICATION
     Route: 048
  2. TRANXENE [Interacting]
     Indication: PRODUCT USED FOR UNKNOWN INDICATION
     Route: 048
  3. STILNOX [Interacting]
     Indication: PRODUCT USED FOR UNKNOWN INDICATION
     Route: 048
     Dates: start: 201309, end: 20140404
  4. TERCIAN [Interacting]
     Indication: PRODUCT USED FOR UNKNOWN INDICATION
     Route: 048
     Dates: start: 201403, end: 20140404
  5. TRAMADOL HYDROCHLORIDE [Interacting]
     Indication: PRODUCT USED FOR UNKNOWN INDICATION
     Route: 048
     Dates: start: 201403, end: 20140404
  6. DEROXAT [Suspect]
     Indication: PRODUCT USED FOR UNKNOWN INDICATION
     Route: 048
     Dates: end: 20140404
  7. ZYPREXA [Suspect]
     Indication: PRODUCT USED FOR UNKNOWN INDICATION
     Route: 048
     Dates: end: 20140404
  8. RISPERIDONE [Interacting]
     Indication: PRODUCT USED FOR UNKNOWN INDICATION
     Route: 048
     Dates: end: 20140404
  9. BETASERC [Concomitant]
  10. TAREG [Concomitant]
  11. TAHOR [Concomitant]
  12. CHONDROSULF [Concomitant]
  13. KALEORID [Concomitant]
  14. EFFERALGAN [Concomitant]
  15. IMUREL [Concomitant]
  16. KARDEGIC [Concomitant]
  17. CIFLOX [Concomitant]
     Indication: URINARY TRACT INFECTION
     Dates: start: 20140402, end: 20140402

REACTIONS (2)
  - Respiratory acidosis [Recovered/Resolved]
  - Somnolence [Recovered/Resolved]
